FAERS Safety Report 15030977 (Version 1)
Quarter: 2018Q2

REPORT INFORMATION
  Report Type: Spontaneous
  Country: FR (occurrence: FR)
  Receive Date: 20180619
  Receipt Date: 20180619
  Transmission Date: 20180711
  Serious: Yes (Hospitalization)
  Sender: FDA-Public Use
  Company Number: FR-MYLANLABS-2018M1041279

PATIENT
  Age: 37 Year
  Sex: Female

DRUGS (5)
  1. QUETIAPINE. [Interacting]
     Active Substance: QUETIAPINE
     Indication: AUTISM SPECTRUM DISORDER
     Dosage: 800 MG, QD
     Route: 048
     Dates: start: 2014
  2. OXAZEPAM. [Interacting]
     Active Substance: OXAZEPAM
     Indication: AUTISM SPECTRUM DISORDER
     Dosage: 5 MG, QD
     Route: 048
     Dates: start: 2014
  3. TERCIAN                            /00759301/ [Interacting]
     Active Substance: CYAMEMAZINE
     Indication: AUTISM SPECTRUM DISORDER
     Dosage: 300 MG, QD
     Route: 048
     Dates: start: 2014
  4. VALPROIC ACID. [Suspect]
     Active Substance: VALPROIC ACID
     Indication: EPILEPSY
     Dosage: 1500 MG, QD
     Route: 048
     Dates: start: 2014
  5. HYDROXYZINE [Interacting]
     Active Substance: HYDROXYZINE HYDROCHLORIDE
     Indication: AUTISM SPECTRUM DISORDER
     Dosage: 150 MG, QD
     Route: 048
     Dates: start: 2014

REACTIONS (3)
  - Subileus [Recovering/Resolving]
  - Drug interaction [Unknown]
  - Faecal vomiting [Recovering/Resolving]

NARRATIVE: CASE EVENT DATE: 20180217
